FAERS Safety Report 13409014 (Version 3)
Quarter: 2022Q2

REPORT INFORMATION
  Report Type: Spontaneous
  Country: US (occurrence: US)
  Receive Date: 20170406
  Receipt Date: 20220622
  Transmission Date: 20220721
  Serious: Yes (Other)
  Sender: FDA-Public Use
  Company Number: US-JNJFOC-20170112836

PATIENT
  Age: 1 Decade
  Sex: Male

DRUGS (7)
  1. RISPERDAL [Suspect]
     Active Substance: RISPERIDONE
     Indication: Psychotic disorder
     Route: 048
     Dates: start: 20080407, end: 20080602
  2. RISPERDAL [Suspect]
     Active Substance: RISPERIDONE
     Indication: Attention deficit hyperactivity disorder
     Route: 048
     Dates: end: 20100531
  3. RISPERDAL [Suspect]
     Active Substance: RISPERIDONE
     Indication: Oppositional defiant disorder
  4. RISPERIDONE [Suspect]
     Active Substance: RISPERIDONE
     Indication: Psychotic disorder
     Route: 048
     Dates: start: 20080712, end: 20090102
  5. RISPERIDONE [Suspect]
     Active Substance: RISPERIDONE
     Route: 048
     Dates: start: 20080728, end: 20100126
  6. RISPERIDONE [Suspect]
     Active Substance: RISPERIDONE
     Route: 048
     Dates: start: 20100226, end: 20100531
  7. RISPERIDONE [Suspect]
     Active Substance: RISPERIDONE
     Indication: Product used for unknown indication
     Route: 048

REACTIONS (3)
  - Gynaecomastia [Unknown]
  - Emotional distress [Unknown]
  - Obesity [Unknown]

NARRATIVE: CASE EVENT DATE: 20090101
